FAERS Safety Report 9670259 (Version 1)
Quarter: 2013Q4

REPORT INFORMATION
  Report Type: Other
  Country: FR (occurrence: FR)
  Receive Date: 20131105
  Receipt Date: 20131105
  Transmission Date: 20140711
  Serious: Yes (Hospitalization)
  Sender: FDA-Public Use
  Company Number: FR-CUBIST PHARMACEUTICALS, INC.-2013CBST001070

PATIENT
  Sex: 0

DRUGS (4)
  1. CUBICIN [Suspect]
     Indication: DIABETIC FOOT
     Dosage: UNK UNK, UNK
     Route: 065
     Dates: start: 20130820, end: 20130917
  2. CUBICIN [Suspect]
     Indication: OFF LABEL USE
  3. TAZOCILLINE [Suspect]
     Indication: PRODUCT USED FOR UNKNOWN INDICATION
     Dosage: UNK UNK UNK
     Route: 065
     Dates: start: 20130820, end: 20130917
  4. RIFADINE /00146901/ [Suspect]
     Indication: PRODUCT USED FOR UNKNOWN INDICATION
     Dosage: UNK, UNK, UNK
     Route: 065
     Dates: start: 20130820, end: 20130917

REACTIONS (1)
  - Organising pneumonia [Recovering/Resolving]
